FAERS Safety Report 22222485 (Version 2)
Quarter: 2023Q4

REPORT INFORMATION
  Report Type: Report from Study
  Country: US (occurrence: US)
  Receive Date: 20230418
  Receipt Date: 20231009
  Transmission Date: 20240109
  Serious: Yes (Hospitalization, Other)
  Sender: FDA-Public Use
  Company Number: US-SUN PHARMACEUTICAL INDUSTRIES LTD-2023R1-385180

PATIENT
  Age: 12 Year
  Sex: Female
  Weight: 29.4 kg

DRUGS (14)
  1. BACTRIM [Suspect]
     Active Substance: SULFAMETHOXAZOLE\TRIMETHOPRIM
     Indication: Product used for unknown indication
     Dosage: UNK
     Route: 065
  2. ITRACONAZOLE [Suspect]
     Active Substance: ITRACONAZOLE
     Indication: Product used for unknown indication
     Dosage: UNK
     Route: 065
  3. ACTIMMUNE [Suspect]
     Active Substance: INTERFERON GAMMA-1B
     Indication: Chronic granulomatous disease
     Dosage: 50 MICROGRAM, 3 TIMES PER WEEK
     Route: 058
     Dates: start: 20221020
  4. ACTIMMUNE [Suspect]
     Active Substance: INTERFERON GAMMA-1B
     Indication: Neutrophil function disorder
     Dosage: UNK
     Route: 058
     Dates: start: 20221024
  5. ACETAMINOPHEN [Concomitant]
     Active Substance: ACETAMINOPHEN
     Indication: Product used for unknown indication
     Dosage: 325 MILLIGRAM, Q6H
     Route: 048
  6. ASCORBIC ACID [Concomitant]
     Active Substance: ASCORBIC ACID
     Indication: Vitamin supplementation
     Dosage: UNK
     Route: 065
  7. ERGOCALCIFEROL [Concomitant]
     Active Substance: ERGOCALCIFEROL
     Indication: Vitamin supplementation
     Dosage: UNK
     Route: 065
  8. FOLIC ACID [Concomitant]
     Active Substance: FOLIC ACID
     Indication: Vitamin supplementation
     Dosage: UNK
     Route: 065
  9. LIDOCAINE [Concomitant]
     Active Substance: LIDOCAINE
     Indication: Product used for unknown indication
     Dosage: UNK, BID
     Route: 061
  10. NICOTINAMIDE [Concomitant]
     Active Substance: NIACINAMIDE
     Indication: Vitamin supplementation
     Dosage: UNK
     Route: 065
  11. PANTHENOL [Concomitant]
     Active Substance: PANTHENOL
     Indication: Vitamin supplementation
     Dosage: UNK
     Route: 065
  12. RETINOL [Concomitant]
     Active Substance: RETINOL
     Indication: Vitamin supplementation
     Dosage: UNK
     Route: 065
  13. RIBOFLAVIN [Concomitant]
     Active Substance: RIBOFLAVIN
     Indication: Vitamin supplementation
     Dosage: UNK
     Route: 065
  14. THIAMINE HYDROCHLORIDE [Concomitant]
     Active Substance: THIAMINE HYDROCHLORIDE
     Indication: Vitamin supplementation
     Dosage: UNK
     Route: 065

REACTIONS (30)
  - Thrombocytopenia [Unknown]
  - Haematochezia [Not Recovered/Not Resolved]
  - Abdominal discomfort [Not Recovered/Not Resolved]
  - Growth retardation [Unknown]
  - Pneumonia [Unknown]
  - Feeling hot [Recovered/Resolved]
  - Feeling abnormal [Unknown]
  - Therapeutic response unexpected [Unknown]
  - Pain [Recovered/Resolved]
  - Headache [Unknown]
  - Fatigue [Recovering/Resolving]
  - Petechiae [Recovered/Resolved]
  - Abdominal pain upper [Not Recovered/Not Resolved]
  - Injection site pain [Recovered/Resolved]
  - Erythema [Unknown]
  - Nasal odour [Unknown]
  - Iron deficiency [Not Recovered/Not Resolved]
  - Sinusitis [Recovering/Resolving]
  - Dyspnoea [Unknown]
  - Head discomfort [Unknown]
  - Breast mass [Unknown]
  - Lymphadenopathy [Unknown]
  - Pyrexia [Unknown]
  - Stress [Unknown]
  - Flushing [Unknown]
  - Decreased appetite [Unknown]
  - Nasal ulcer [Unknown]
  - Condition aggravated [Unknown]
  - Wound [Unknown]
  - Peripheral swelling [Unknown]

NARRATIVE: CASE EVENT DATE: 20220101
